FAERS Safety Report 11106630 (Version 1)
Quarter: 2015Q2

REPORT INFORMATION
  Report Type: Spontaneous
  Country: US (occurrence: None)
  Receive Date: 20150508
  Receipt Date: 20150508
  Transmission Date: 20150821
  Serious: Yes (Other)
  Sender: FDA-Public Use
  Company Number: CA-SEPTODONT-2015027892

PATIENT
  Age: 75 Year
  Sex: Female
  Weight: 63.5 kg

DRUGS (2)
  1. ARTICAINE HYDROCHLORIDE; EPINEPHRINE BITARTRATE [Suspect]
     Active Substance: ARTICAINE HYDROCHLORIDE\EPINEPHRINE BITARTRATE
     Indication: LOCAL ANAESTHESIA
     Dosage: 1 DF TOTAL DENTAL
     Dates: start: 20140618, end: 20140618
  2. SULTAN TOPEX (BENZOCAINE) [Concomitant]

REACTIONS (5)
  - Fatigue [None]
  - Somnolence [None]
  - No reaction on previous exposure to drug [None]
  - Irritability [None]
  - Loss of consciousness [None]

NARRATIVE: CASE EVENT DATE: 20140618
